FAERS Safety Report 20332041 (Version 1)
Quarter: 2022Q1

REPORT INFORMATION
  Report Type: Spontaneous
  Country: US (occurrence: None)
  Receive Date: 20220113
  Receipt Date: 20220113
  Transmission Date: 20220423
  Serious: Yes (Hospitalization)
  Sender: FDA-Public Use
  Company Number: None

PATIENT
  Age: 16 Year
  Sex: Male
  Weight: 42 kg

DRUGS (3)
  1. MERCAPTOPURINE [Suspect]
     Active Substance: MERCAPTOPURINE
  2. VINCRISTINE SULFATE [Suspect]
     Active Substance: VINCRISTINE SULFATE
  3. METHOTREXATE [Suspect]
     Active Substance: METHOTREXATE

REACTIONS (4)
  - Pancreatitis [None]
  - Pseudocyst [None]
  - Hypophagia [None]
  - Pulmonary mass [None]

NARRATIVE: CASE EVENT DATE: 20220105
